FAERS Safety Report 21401696 (Version 1)
Quarter: 2022Q4

REPORT INFORMATION
  Report Type: Spontaneous
  Country: US (occurrence: US)
  Receive Date: 20221003
  Receipt Date: 20221003
  Transmission Date: 20230113
  Serious: Yes (Other)
  Sender: FDA-Public Use
  Company Number: US-BRISTOL-MYERS SQUIBB COMPANY-2022-108091

PATIENT
  Age: 71 Year
  Sex: Female

DRUGS (2)
  1. REVLIMID [Suspect]
     Active Substance: LENALIDOMIDE
     Indication: Plasma cell myeloma
     Dosage: TAKE 1 WHOLE ?CAPSULE BY ?MOUTH WITH ?WATER AT THE ?SAME TIME EVERY ?DAY ON DAYS 1-21 ?OF EACH 28 DA
     Route: 048
     Dates: start: 20220227
  2. REVLIMID [Suspect]
     Active Substance: LENALIDOMIDE
     Dosage: TAKE 1 WHOLE CAPSULE BY MOUTH WITH WATER AT THE SAME TIME EVERY DAYS ON DAY 1-21 OF EACH 28DAY CYCLE
     Route: 048
     Dates: start: 20220222

REACTIONS (1)
  - Thrombosis [Recovered/Resolved]
